FAERS Safety Report 12765416 (Version 1)
Quarter: 2016Q3

REPORT INFORMATION
  Report Type: Spontaneous
  Country: GB (occurrence: GB)
  Receive Date: 20160921
  Receipt Date: 20160921
  Transmission Date: 20161109
  Serious: Yes (Other)
  Sender: FDA-Public Use
  Company Number: GB-AUROBINDO-AUR-APL-2016-11460

PATIENT
  Age: 72 Year
  Sex: Female
  Weight: 63.5 kg

DRUGS (4)
  1. METFORMIN [Suspect]
     Active Substance: METFORMIN HYDROCHLORIDE
     Indication: TYPE 2 DIABETES MELLITUS
     Dosage: 500 MG, ONCE A DAY (PRESCRIBED IN 24/02/2016 BUT DIDN^T TAKE AS COULDN^T SWALLOW BIG TABLETS. CRUSH)
     Route: 065
     Dates: start: 201604, end: 20160809
  2. LEVOTHYROXINE. [Concomitant]
     Active Substance: LEVOTHYROXINE
     Indication: HYPOTHYROIDISM
     Dosage: 100 ?G, EVERY OTHER DAY (50/100MCG ALTERNATE DAYS. ONGOING.)
     Route: 065
     Dates: start: 2004
  3. LEVOTHYROXINE. [Concomitant]
     Active Substance: LEVOTHYROXINE
     Dosage: 50 ?G, EVERY OTHER DAY (50/100MCG ALTERNATE DAYS. ONGOING.)
     Route: 065
     Dates: start: 2004
  4. BISOPROLOL [Concomitant]
     Active Substance: BISOPROLOL
     Indication: DYSPNOEA
     Dosage: 1.25 MG, ONCE A DAY
     Route: 065

REACTIONS (3)
  - Palpitations [Recovering/Resolving]
  - Product preparation error [Unknown]
  - Extrasystoles [Recovering/Resolving]

NARRATIVE: CASE EVENT DATE: 20160501
